FAERS Safety Report 20785161 (Version 2)
Quarter: 2022Q3

REPORT INFORMATION
  Report Type: Spontaneous
  Country: US (occurrence: US)
  Receive Date: 20220504
  Receipt Date: 20220806
  Transmission Date: 20221026
  Serious: No
  Sender: FDA-Public Use
  Company Number: US-Blueprint Medicines Corporation-39

PATIENT
  Sex: Female

DRUGS (2)
  1. AYVAKIT [Suspect]
     Active Substance: AVAPRITINIB
     Indication: Haematopoietic neoplasm
     Route: 048
     Dates: start: 20210720
  2. AYVAKIT [Suspect]
     Active Substance: AVAPRITINIB
     Route: 048
     Dates: start: 20210720

REACTIONS (12)
  - Swelling face [Unknown]
  - Peripheral swelling [Unknown]
  - Joint swelling [Unknown]
  - Product dose omission issue [Unknown]
  - Fatigue [Unknown]
  - Mood altered [Unknown]
  - Visual impairment [Unknown]
  - Swelling [Unknown]
  - Constipation [Unknown]
  - Alopecia [Unknown]
  - Weight increased [Unknown]
  - Pruritus [Unknown]
